FAERS Safety Report 17169238 (Version 2)
Quarter: 2020Q2

REPORT INFORMATION
  Report Type: Report from Study
  Country: CN (occurrence: CN)
  Receive Date: 20191218
  Receipt Date: 20200414
  Transmission Date: 20200713
  Serious: Yes (Death)
  Sender: FDA-Public Use
  Company Number: CN-ROCHE-2456183

PATIENT
  Age: 65 Year
  Sex: Female
  Weight: 60 kg

DRUGS (3)
  1. BLINDED BEVACIZUMAB [Suspect]
     Active Substance: BEVACIZUMAB
     Indication: COLORECTAL CANCER METASTATIC
     Dosage: ON DAY 1
     Route: 042
     Dates: start: 20181227, end: 20181227
  2. OXALIPLATIN. [Suspect]
     Active Substance: OXALIPLATIN
     Indication: COLORECTAL CANCER METASTATIC
     Dosage: ON DAY 1
     Route: 041
     Dates: start: 20181227, end: 20181227
  3. CAPECITABINE. [Suspect]
     Active Substance: CAPECITABINE
     Indication: COLORECTAL CANCER METASTATIC
     Route: 048
     Dates: start: 20181227, end: 20190110

REACTIONS (2)
  - Respiratory failure [Fatal]
  - Circulatory collapse [Fatal]

NARRATIVE: CASE EVENT DATE: 20190112
